FAERS Safety Report 13174333 (Version 1)
Quarter: 2017Q1

REPORT INFORMATION
  Report Type: Spontaneous
  Country: IT (occurrence: IT)
  Receive Date: 20170201
  Receipt Date: 20170201
  Transmission Date: 20170428
  Serious: Yes (Hospitalization)
  Sender: FDA-Public Use
  Company Number: IT-ELI_LILLY_AND_COMPANY-IT201701008786

PATIENT
  Age: 67 Year
  Sex: Female
  Weight: 68 kg

DRUGS (10)
  1. CARBOPLATIN. [Suspect]
     Active Substance: CARBOPLATIN
     Indication: LUNG NEOPLASM MALIGNANT
     Dosage: 300 MG, CYCLICAL
     Route: 042
     Dates: start: 20161121, end: 20161220
  2. PANTORC [Concomitant]
     Active Substance: PANTOPRAZOLE SODIUM
     Indication: GASTRIC DISORDER
     Dosage: 20 MG, UNKNOWN
     Route: 048
  3. FOLINGRAV [Concomitant]
  4. DOBETIN                            /00056201/ [Concomitant]
     Active Substance: CYANOCOBALAMIN
  5. ALIMTA [Suspect]
     Active Substance: PEMETREXED DISODIUM
     Indication: LUNG NEOPLASM MALIGNANT
     Dosage: 600 MG, CYCLICAL
     Route: 042
     Dates: start: 20161121, end: 20161220
  6. CONGESCOR [Concomitant]
     Active Substance: BISOPROLOL
     Indication: CARDIOMYOPATHY
     Dosage: 1.25 MG, UNKNOWN
     Route: 048
  7. ZYLORIC [Concomitant]
     Active Substance: ALLOPURINOL
     Indication: HYPERURICAEMIA
     Dosage: 300 MG, UNKNOWN
     Route: 048
  8. MEDROL [Concomitant]
     Active Substance: METHYLPREDNISOLONE
     Indication: DYSPNOEA
     Dosage: 16 MG, UNKNOWN
     Route: 048
  9. LASIX [Concomitant]
     Active Substance: FUROSEMIDE
     Indication: CARDIOMYOPATHY
     Dosage: 75 MG, UNKNOWN
     Route: 048
  10. RAMIPRIL. [Concomitant]
     Active Substance: RAMIPRIL
     Indication: HYPERTENSION
     Dosage: 1.25 MG, UNKNOWN
     Route: 048

REACTIONS (2)
  - Off label use [Unknown]
  - Cardiac failure acute [Recovered/Resolved]

NARRATIVE: CASE EVENT DATE: 20161121
